FAERS Safety Report 9463516 (Version 1)
Quarter: 2013Q3

REPORT INFORMATION
  Report Type: Report from Study
  Country: MX (occurrence: MX)
  Receive Date: 20130819
  Receipt Date: 20130819
  Transmission Date: 20140515
  Serious: Yes (Death)
  Sender: FDA-Public Use
  Company Number: MX-ROCHE-1261459

PATIENT
  Age: 80 Year
  Sex: Male
  Weight: 60 kg

DRUGS (2)
  1. XELODA [Suspect]
     Indication: METASTATIC GASTRIC CANCER
     Dosage: TWICE DAILY FOR 15 DAYS FOLLOWED BY 7 DAYS REST
     Route: 048
     Dates: start: 201209
  2. METHOTREXATE [Concomitant]
     Indication: ARTHRITIS
     Route: 048
     Dates: start: 2012, end: 2012

REACTIONS (2)
  - Metastases to liver [Fatal]
  - Weight decreased [Not Recovered/Not Resolved]
